FAERS Safety Report 25331649 (Version 2)
Quarter: 2025Q3

REPORT INFORMATION
  Report Type: Spontaneous
  Country: EU (occurrence: EU)
  Receive Date: 20250519
  Receipt Date: 20250702
  Transmission Date: 20251020
  Serious: Yes (Hospitalization, Other)
  Sender: PFIZER
  Company Number: EU-UCBSA-2025026131

PATIENT
  Sex: Female

DRUGS (4)
  1. LEVETIRACETAM [Suspect]
     Active Substance: LEVETIRACETAM
     Indication: Status epilepticus
     Dates: start: 202112, end: 202308
  2. OXCARBAZEPINE [Concomitant]
     Active Substance: OXCARBAZEPINE
     Dates: start: 202112
  3. VITAMINS NOS [Concomitant]
     Active Substance: VITAMINS
     Dates: start: 202112
  4. VALPROIC ACID [Concomitant]
     Active Substance: VALPROIC ACID
     Dates: start: 202208

REACTIONS (11)
  - Status epilepticus [Unknown]
  - Seizure cluster [Unknown]
  - Gastrostomy [Unknown]
  - Epilepsy [Unknown]
  - Seizure [Unknown]
  - Oxygen saturation decreased [Unknown]
  - Cyanosis [Unknown]
  - Muscle rigidity [Unknown]
  - Pyrexia [Unknown]
  - Drug ineffective [Unknown]
  - Off label use [Unknown]

NARRATIVE: CASE EVENT DATE: 20211201
